FAERS Safety Report 20075702 (Version 2)
Quarter: 2021Q4

REPORT INFORMATION
  Report Type: Report from Study
  Country: BR (occurrence: BR)
  Receive Date: 20211116
  Receipt Date: 20211130
  Transmission Date: 20220303
  Serious: Yes (Life-Threatening, Hospitalization, Other)
  Sender: FDA-Public Use
  Company Number: BR-TAKEDA-BR201836330

PATIENT
  Age: 15 Year
  Sex: Male
  Weight: 46 kg

DRUGS (6)
  1. IDURSULFASE [Suspect]
     Active Substance: IDURSULFASE
     Indication: Mucopolysaccharidosis II
     Dosage: 4 DOSAGE FORM, 1/WEEK
     Route: 042
     Dates: start: 20111214
  2. DIPHENHYDRAMINE [Concomitant]
     Active Substance: DIPHENHYDRAMINE
     Indication: Anaphylactic reaction
     Dosage: UNK
     Route: 065
  3. SOLU-CORTEF [Concomitant]
     Active Substance: HYDROCORTISONE SODIUM SUCCINATE
     Dosage: UNK
     Route: 065
  4. HYDROXYZINE HYDROCHLORIDE [Concomitant]
     Active Substance: HYDROXYZINE HYDROCHLORIDE
     Dosage: UNK
     Route: 065
  5. BEROTEC [Concomitant]
     Active Substance: FENOTEROL HYDROBROMIDE
     Dosage: UNK
     Route: 065
  6. ATROVENT [Concomitant]
     Active Substance: IPRATROPIUM BROMIDE
     Dosage: UNK
     Route: 065

REACTIONS (5)
  - Respiratory failure [Not Recovered/Not Resolved]
  - Adverse event [Recovered/Resolved]
  - Loss of consciousness [Not Recovered/Not Resolved]
  - Catheter placement [Unknown]
  - Inappropriate schedule of product administration [Unknown]

NARRATIVE: CASE EVENT DATE: 20211105
